FAERS Safety Report 24444767 (Version 2)
Quarter: 2024Q4

REPORT INFORMATION
  Report Type: Report from Study
  Country: US (occurrence: US)
  Receive Date: 20241016
  Receipt Date: 20241017
  Transmission Date: 20250115
  Serious: No
  Sender: ROCHE
  Company Number: US-ROCHE-2993019

PATIENT
  Age: 53 Year
  Sex: Female

DRUGS (2)
  1. RITUXAN [Suspect]
     Active Substance: RITUXIMAB
     Indication: Encephalitis
     Dosage: DATE OF SERVICE: 20/MAY/2022, 15/JUN/2023 ?DATE OF TREATMENT: 29/DEC/2022, 20/JUN/2022, 27/DEC/2021,
     Route: 065
  2. RITUXAN [Suspect]
     Active Substance: RITUXIMAB
     Indication: Encephalomyelitis

REACTIONS (2)
  - Off label use [Unknown]
  - No adverse event [Unknown]
